FAERS Safety Report 8392314-8 (Version None)
Quarter: 2012Q2

REPORT INFORMATION
  Report Type: 
  Country: None (occurrence: None)
  Receive Date: 20120529
  Receipt Date: 20120521
  Transmission Date: 20120825
  Serious: Yes (Other)
  Sender: FDA-Public Use
  Company Number: US-ELI_LILLY_AND_COMPANY-US201204008765

PATIENT
  Age: 66 Year
  Sex: Male

DRUGS (5)
  1. MELOXICAM [Concomitant]
  2. CIALIS [Suspect]
     Dosage: 5 MG, QD
     Dates: start: 20110921
  3. VYTORIN [Concomitant]
  4. NIASPAN [Concomitant]
  5. METOPROLOL TARTRATE [Concomitant]

REACTIONS (2)
  - COMPRESSION FRACTURE [None]
  - PROSTATE CANCER [None]
